FAERS Safety Report 12728705 (Version 1)
Quarter: 2016Q3

REPORT INFORMATION
  Report Type: Spontaneous
  Country: US (occurrence: US)
  Receive Date: 20160907
  Receipt Date: 20160907
  Transmission Date: 20161109
  Serious: Yes (Hospitalization)
  Sender: FDA-Public Use
  Company Number: None

PATIENT
  Age: 69 Year
  Sex: Male

DRUGS (1)
  1. ZEPATIER [Suspect]
     Active Substance: ELBASVIR\GRAZOPREVIR
     Indication: CHRONIC HEPATITIS C
     Dosage: 50-100 MG QD ORAL
     Route: 048

REACTIONS (5)
  - Pulmonary oedema [None]
  - Unevaluable event [None]
  - White blood cell count increased [None]
  - Dyspnoea [None]
  - Atrial fibrillation [None]

NARRATIVE: CASE EVENT DATE: 20160907
